FAERS Safety Report 12652824 (Version 2)
Quarter: 2016Q3

REPORT INFORMATION
  Report Type: Spontaneous
  Country: AZ (occurrence: AZ)
  Receive Date: 20160815
  Receipt Date: 20160831
  Transmission Date: 20161109
  Serious: Yes (Hospitalization, Other)
  Sender: FDA-Public Use
  Company Number: AZ-NOVOPROD-504686

PATIENT
  Age: 22 Year
  Sex: Female
  Weight: 48 kg

DRUGS (8)
  1. ACTRAPID [Suspect]
     Active Substance: INSULIN HUMAN
     Dosage: 6-18 UNITS PER DAY
     Route: 058
     Dates: start: 201603, end: 20160704
  2. LEVEMIR [Suspect]
     Active Substance: INSULIN DETEMIR
     Indication: TYPE 2 DIABETES MELLITUS
     Dosage: UNK
     Route: 065
     Dates: start: 20160704, end: 20160706
  3. NOVORAPID [Suspect]
     Active Substance: INSULIN ASPART
     Indication: TYPE 2 DIABETES MELLITUS
     Dosage: UNK
     Route: 065
     Dates: start: 20160704, end: 20160706
  4. ISOPHANE INSULIN [Suspect]
     Active Substance: INSULIN NOS
     Indication: TYPE 2 DIABETES MELLITUS
     Dosage: 4 U
     Route: 058
     Dates: start: 2014
  5. ACTRAPID [Suspect]
     Active Substance: INSULIN HUMAN
     Indication: TYPE 2 DIABETES MELLITUS
     Dosage: 6 U
     Route: 058
     Dates: start: 2014
  6. ISOPHANE INSULIN [Suspect]
     Active Substance: INSULIN NOS
     Dosage: 8 U, QD (4+0+4)
     Route: 058
     Dates: start: 20160707
  7. ISOPHANE INSULIN [Suspect]
     Active Substance: INSULIN NOS
     Dosage: 8 U, QD (4+0+4)
     Route: 058
     Dates: start: 201603, end: 20160704
  8. ACTRAPID [Suspect]
     Active Substance: INSULIN HUMAN
     Dosage: 6-18 UNITS PER DAY
     Route: 058
     Dates: start: 20160707

REACTIONS (3)
  - Exposure during pregnancy [Recovered/Resolved]
  - Abortion induced [Recovered/Resolved]
  - Blood glucose increased [Unknown]

NARRATIVE: CASE EVENT DATE: 20160530
